FAERS Safety Report 24578009 (Version 1)
Quarter: 2024Q4

REPORT INFORMATION
  Report Type: Spontaneous
  Country: US (occurrence: US)
  Receive Date: 20241104
  Receipt Date: 20241104
  Transmission Date: 20250115
  Serious: Yes (Other)
  Sender: BEIGENE
  Company Number: US-ABBVIE-5726900

PATIENT

DRUGS (2)
  1. BRUKINSA [Suspect]
     Active Substance: ZANUBRUTINIB
     Indication: Mantle cell lymphoma
  2. VENCLEXTA [Suspect]
     Active Substance: VENETOCLAX
     Indication: Mantle cell lymphoma

REACTIONS (5)
  - Neoplasm malignant [Unknown]
  - Skin disorder [Unknown]
  - Feeling abnormal [Unknown]
  - Blood test abnormal [Unknown]
  - Drug ineffective [Unknown]
